FAERS Safety Report 7578316-X (Version None)
Quarter: 2011Q2

REPORT INFORMATION
  Report Type: 
  Country: None (occurrence: None)
  Receive Date: 20110628
  Receipt Date: 20110607
  Transmission Date: 20111010
  Serious: Yes (Other)
  Sender: FDA-Public Use
  Company Number: US-BAYER-2011-023430

PATIENT
  Sex: Female
  Weight: 117.91 kg

DRUGS (5)
  1. VICODIN [Concomitant]
  2. METFORMIN HCL [Concomitant]
     Dosage: 500 MG, UNK
  3. YAZ [Suspect]
     Route: 048
  4. YASMIN [Suspect]
     Indication: POLYCYSTIC OVARIES
     Dosage: UNK
     Route: 048
     Dates: start: 20020401, end: 20070101
  5. AMITRIPTYLINE HCL [Concomitant]
     Dosage: 10 MG, UNK

REACTIONS (9)
  - CHOLELITHIASIS [None]
  - EMOTIONAL DISTRESS [None]
  - OEDEMA PERIPHERAL [None]
  - CHOLECYSTITIS INFECTIVE [None]
  - CHOLECYSTITIS CHRONIC [None]
  - EXTRASYSTOLES [None]
  - DYSPEPSIA [None]
  - UTERINE CANCER [None]
  - HEART RATE INCREASED [None]
